FAERS Safety Report 14346021 (Version 3)
Quarter: 2018Q2

REPORT INFORMATION
  Report Type: Report from Study
  Country: DE (occurrence: DE)
  Receive Date: 20180103
  Receipt Date: 20180606
  Transmission Date: 20180711
  Serious: Yes (Other)
  Sender: FDA-Public Use
  Company Number: DE-IPSEN BIOPHARMACEUTICALS, INC.-2017-16499

PATIENT
  Age: 68 Year
  Sex: Male
  Weight: 90 kg

DRUGS (15)
  1. AVASTIN [Suspect]
     Active Substance: BEVACIZUMAB
     Route: 042
     Dates: start: 20151119, end: 20151217
  2. FOLINIC ACID [Concomitant]
     Active Substance: LEUCOVORIN
     Dates: start: 20151008
  3. AVASTIN [Suspect]
     Active Substance: BEVACIZUMAB
     Indication: COLORECTAL CANCER METASTATIC
     Route: 042
     Dates: start: 20151008
  4. ASPIRIN. [Concomitant]
     Active Substance: ASPIRIN
  5. 5-FLUOROURACIL [Suspect]
     Active Substance: FLUOROURACIL
     Route: 042
     Dates: start: 20160114
  6. SIMVASTATIN. [Concomitant]
     Active Substance: SIMVASTATIN
  7. METFORMIN [Concomitant]
     Active Substance: METFORMIN HYDROCHLORIDE
  8. ALLOPURINOL. [Concomitant]
     Active Substance: ALLOPURINOL
  9. AVASTIN [Suspect]
     Active Substance: BEVACIZUMAB
     Route: 042
     Dates: start: 20160114
  10. METOPROLOL. [Concomitant]
     Active Substance: METOPROLOL
  11. IRINOTECAN [Suspect]
     Active Substance: IRINOTECAN
     Indication: COLORECTAL CANCER METASTATIC
     Dates: start: 20151008
  12. IRINOTECAN [Suspect]
     Active Substance: IRINOTECAN
     Indication: OFF LABEL USE
     Route: 042
     Dates: start: 20160114
  13. 5-FLUOROURACIL [Suspect]
     Active Substance: FLUOROURACIL
     Indication: COLORECTAL CANCER METASTATIC
     Route: 042
     Dates: start: 20151008, end: 20151219
  14. RAMIPRIL. [Concomitant]
     Active Substance: RAMIPRIL
  15. LYRICA [Concomitant]
     Active Substance: PREGABALIN

REACTIONS (7)
  - Nausea [Recovered/Resolved]
  - Oedema [Unknown]
  - Anaemia of malignant disease [Not Recovered/Not Resolved]
  - Leukopenia [Not Recovered/Not Resolved]
  - Hiccups [Unknown]
  - Off label use [Unknown]
  - Pain in extremity [Recovered/Resolved]

NARRATIVE: CASE EVENT DATE: 20151119
